FAERS Safety Report 6724092-X (Version None)
Quarter: 2010Q2

REPORT INFORMATION
  Report Type: 
  Country: None (occurrence: None)
  Receive Date: 20100513
  Receipt Date: 20100503
  Transmission Date: 20101027
  Serious: Yes (Hospitalization)
  Sender: FDA-Public Use
  Company Number: ES-ROCHE-701040

PATIENT
  Age: 54 Year
  Sex: Male

DRUGS (6)
  1. MYCOPHENOLATE MOFETIL [Suspect]
     Indication: RENAL TRANSPLANT
     Dosage: START DATE: LONG TERM
     Route: 048
  2. FUROSEMIDE [Interacting]
     Dosage: FREQUENCY: DAILY
     Route: 048
     Dates: start: 20090721, end: 20090901
  3. ADVAGRAF [Interacting]
     Indication: RENAL TRANSPLANT
     Dosage: START DATE: LONG TERM, FREQUENCY: DAILY
     Route: 048
  4. COLCHIMAX [Interacting]
     Indication: GOUT
     Dosage: FREQUENCY: DAILY
     Route: 048
     Dates: start: 20090826, end: 20090831
  5. NEBIVOLOL HCL [Interacting]
     Dosage: FREQUENCY: DAILY
     Route: 048
     Dates: start: 20090204
  6. VOLTAREN [Interacting]
     Indication: PAIN
     Dosage: FREQUENCY: DAILY
     Route: 048
     Dates: start: 20090826

REACTIONS (1)
  - RENAL FAILURE ACUTE [None]
